FAERS Safety Report 11873691 (Version 2)
Quarter: 2016Q1

REPORT INFORMATION
  Report Type: Report from Study
  Country: BR (occurrence: BR)
  Receive Date: 20151228
  Receipt Date: 20160125
  Transmission Date: 20160526
  Serious: Yes (Other)
  Sender: FDA-Public Use
  Company Number: PHHY2015BR168519

PATIENT
  Sex: Male
  Weight: 54 kg

DRUGS (3)
  1. RITALIN LA [Suspect]
     Active Substance: METHYLPHENIDATE HYDROCHLORIDE
     Indication: ATTENTION DEFICIT/HYPERACTIVITY DISORDER
     Dosage: 1 DF, QD
     Route: 065
     Dates: start: 201508, end: 201508
  2. DEPACON [Concomitant]
     Active Substance: VALPROATE SODIUM
     Dosage: 1 DF (750 MG), QD
     Route: 048
  3. DEPACON [Concomitant]
     Active Substance: VALPROATE SODIUM
     Indication: EPILEPSY
     Dosage: 1 DF (500 MG), QD
     Route: 048

REACTIONS (8)
  - Syncope [Unknown]
  - Myocardial infarction [Recovered/Resolved]
  - Decreased appetite [Recovered/Resolved]
  - Malaise [Recovered/Resolved]
  - Depressed mood [Recovered/Resolved]
  - Dizziness [Recovered/Resolved]
  - Psychogenic seizure [Unknown]
  - Anxiety [Recovered/Resolved]
